FAERS Safety Report 8545700-7 (Version None)
Quarter: 2012Q3

REPORT INFORMATION
  Report Type: 
  Country: None (occurrence: None)
  Receive Date: 20120727
  Receipt Date: 20120716
  Transmission Date: 20120928
  Serious: Yes (Other)
  Sender: FDA-Public Use
  Company Number: US-ASTELLAS-2012US006415

PATIENT
  Sex: Female
  Weight: 56 kg

DRUGS (1)
  1. ERLOTINIB HYDROCHLORIDE [Suspect]
     Indication: NON-SMALL CELL LUNG CANCER
     Dosage: 100 MG, UID/QD
     Route: 048
     Dates: start: 20120601

REACTIONS (11)
  - VOMITING [None]
  - INCORRECT DOSE ADMINISTERED [None]
  - WEIGHT DECREASED [None]
  - ABDOMINAL DISCOMFORT [None]
  - COUGH [None]
  - PULMONARY OEDEMA [None]
  - DECREASED APPETITE [None]
  - RASH [None]
  - FLATULENCE [None]
  - DIARRHOEA [None]
  - NAUSEA [None]
